FAERS Safety Report 19751667 (Version 1)
Quarter: 2021Q3

REPORT INFORMATION
  Report Type: Spontaneous
  Country: US (occurrence: US)
  Receive Date: 20210827
  Receipt Date: 20210827
  Transmission Date: 20211014
  Serious: Yes (Other)
  Sender: FDA-Public Use
  Company Number: US-SA-2021SA279557

PATIENT
  Age: 74 Year
  Sex: Female
  Weight: 78 kg

DRUGS (2)
  1. TYVASO [Suspect]
     Active Substance: TREPROSTINIL
     Indication: PULMONARY ARTERIAL HYPERTENSION
     Dosage: UNK, Q6H (18?54 ?G (3?9 BREATHS)
     Route: 055
     Dates: start: 20201119
  2. BISACODYL. [Suspect]
     Active Substance: BISACODYL
     Dosage: UNK
     Route: 065
     Dates: start: 20201119

REACTIONS (6)
  - Foreign body in gastrointestinal tract [Unknown]
  - Impaired gastric emptying [Unknown]
  - Arthralgia [Unknown]
  - Product dose omission issue [Unknown]
  - Costochondritis [Unknown]
  - Gastric haemorrhage [Unknown]

NARRATIVE: CASE EVENT DATE: 2021
